FAERS Safety Report 5392092-0 (Version None)
Quarter: 2007Q3

REPORT INFORMATION
  Report Type: 
  Country: None (occurrence: None)
  Receive Date: 20070718
  Receipt Date: 20070718
  Transmission Date: 20080115
  Serious: Yes (Hospitalization)
  Sender: FDA-Public Use
  Company Number: None

PATIENT
  Sex: Female
  Weight: 89 kg

DRUGS (2)
  1. DACLIZUMAB 1MG/KG ROCHE [Suspect]
     Indication: MULTIPLE SCLEROSIS
     Dosage: 1MG/KG 1X/MONTH IV
     Route: 042
     Dates: start: 20050602, end: 20070131
  2. DACLIZUMAB 1MG/KG ROCHE [Suspect]
     Indication: OFF LABEL USE
     Dosage: 1MG/KG 1X/MONTH IV
     Route: 042
     Dates: start: 20050602, end: 20070131

REACTIONS (5)
  - CENTRAL NERVOUS SYSTEM INFLAMMATION [None]
  - CONDITION AGGRAVATED [None]
  - MULTIPLE SCLEROSIS [None]
  - NUCLEAR MAGNETIC RESONANCE IMAGING BRAIN ABNORMAL [None]
  - PLEOCYTOSIS [None]
